FAERS Safety Report 21231447 (Version 3)
Quarter: 2025Q2

REPORT INFORMATION
  Report Type: Report from Study
  Country: CA (occurrence: CA)
  Receive Date: 20220819
  Receipt Date: 20250602
  Transmission Date: 20250717
  Serious: Yes (Death, Other)
  Sender: AUROBINDO
  Company Number: CA-AUROBINDO-AUR-APL-2022-032523

PATIENT
  Age: 5 Day
  Weight: 1.49 kg

DRUGS (4)
  1. LOSARTAN [Suspect]
     Active Substance: LOSARTAN
     Indication: Product used for unknown indication
     Route: 064
  2. PERINDOPRIL [Suspect]
     Active Substance: PERINDOPRIL
     Indication: Product used for unknown indication
     Route: 064
  3. LASIX [Suspect]
     Active Substance: FUROSEMIDE
     Indication: Product used for unknown indication
     Route: 064
  4. SPIRONOLACTONE [Suspect]
     Active Substance: SPIRONOLACTONE
     Indication: Product used for unknown indication
     Route: 064

REACTIONS (5)
  - Hypocalvaria [Fatal]
  - Angiotensin converting enzyme inhibitor foetopathy [Fatal]
  - Foetal exposure during pregnancy [Fatal]
  - Renal tubular dysfunction [Fatal]
  - Oligohydramnios [Unknown]
